FAERS Safety Report 20707546 (Version 2)
Quarter: 2022Q2

REPORT INFORMATION
  Report Type: Spontaneous
  Country: JP (occurrence: JP)
  Receive Date: 20220413
  Receipt Date: 20220426
  Transmission Date: 20220720
  Serious: Yes (Hospitalization)
  Sender: FDA-Public Use
  Company Number: JP-TEVA-2022-JP-2025877

PATIENT
  Age: 76 Year
  Sex: Male

DRUGS (14)
  1. WARFARIN [Interacting]
     Active Substance: WARFARIN
     Indication: Deep vein thrombosis
     Dosage: 2 MILLIGRAM DAILY;
     Route: 065
  2. CARBOCYSTEINE [Suspect]
     Active Substance: CARBOCYSTEINE
     Indication: COVID-19
     Dosage: 1500 MILLIGRAM DAILY;
     Route: 065
  3. CEFTRIAXONE [Suspect]
     Active Substance: CEFTRIAXONE
     Indication: COVID-19
     Dosage: 1 GRAM DAILY;
     Route: 042
  4. LEVOFLOXACIN [Suspect]
     Active Substance: LEVOFLOXACIN
     Indication: COVID-19
     Route: 065
  5. FAVIPIRAVIR [Interacting]
     Active Substance: FAVIPIRAVIR
     Indication: COVID-19
     Dosage: 3600 MILLIGRAM DAILY;
     Route: 048
  6. FAVIPIRAVIR [Interacting]
     Active Substance: FAVIPIRAVIR
     Dosage: 1600 MILLIGRAM DAILY;
     Route: 048
  7. CICLESONIDE [Suspect]
     Active Substance: CICLESONIDE
     Indication: COVID-19
     Dosage: 1200 MICROGRAM DAILY;
     Route: 055
  8. DEXAMETHASONE [Suspect]
     Active Substance: DEXAMETHASONE
     Indication: COVID-19
     Dosage: 6.6 MILLIGRAM DAILY;
     Route: 042
  9. VONOPRAZAN [Suspect]
     Active Substance: VONOPRAZAN
     Indication: COVID-19
     Dosage: 10 MILLIGRAM DAILY;
     Route: 065
  10. DISTIGMINE BROMIDE [Concomitant]
     Active Substance: DISTIGMINE BROMIDE
     Indication: Product used for unknown indication
     Route: 065
  11. URAPIDIL [Concomitant]
     Active Substance: URAPIDIL
     Indication: Product used for unknown indication
     Route: 065
  12. MAGNESIUM OXIDE [Concomitant]
     Active Substance: MAGNESIUM OXIDE
     Indication: Product used for unknown indication
     Route: 065
  13. PREGABALIN [Concomitant]
     Active Substance: PREGABALIN
     Indication: Product used for unknown indication
     Route: 065
  14. SODIUM FERROUS CITRATE [Concomitant]
     Active Substance: SODIUM FERROUS CITRATE
     Indication: Product used for unknown indication
     Route: 065

REACTIONS (3)
  - International normalised ratio increased [Recovered/Resolved]
  - Drug interaction [Unknown]
  - Off label use [Unknown]
